FAERS Safety Report 4923827-6 (Version None)
Quarter: 2006Q1

REPORT INFORMATION
  Report Type: 
  Country: None (occurrence: None)
  Receive Date: 20060227
  Receipt Date: 20060215
  Transmission Date: 20060701
  Serious: Yes (Death, Hospitalization, Other)
  Sender: FDA-Public Use
  Company Number: JP-MERCK-0602USA04917

PATIENT
  Age: 7 Year
  Sex: Male
  Weight: 30 kg

DRUGS (9)
  1. DECADRON [Suspect]
     Route: 065
     Dates: start: 20040101
  2. DECADRON [Suspect]
     Route: 065
     Dates: start: 20040301
  3. DECADRON [Suspect]
     Route: 065
     Dates: start: 20040301
  4. DECADRON [Suspect]
     Route: 065
     Dates: start: 20040301
  5. PREDNISOLONE [Concomitant]
     Route: 065
  6. METHYLPREDNISOLONE [Concomitant]
     Route: 065
  7. GLOBULIN, IMMUNE [Concomitant]
     Route: 065
  8. ACYCLOVIR [Concomitant]
     Route: 065
  9. FOSCARNET SODIUM [Concomitant]
     Route: 065

REACTIONS (15)
  - ABDOMINAL PAIN [None]
  - ACUTE RESPIRATORY DISTRESS SYNDROME [None]
  - BACK PAIN [None]
  - DEATH [None]
  - DISSEMINATED INTRAVASCULAR COAGULATION [None]
  - HEPATITIS [None]
  - HERPES ZOSTER [None]
  - HYPONATRAEMIA [None]
  - MULTI-ORGAN FAILURE [None]
  - PANCREATITIS [None]
  - PNEUMONIA [None]
  - RENAL FAILURE ACUTE [None]
  - RESPIRATORY FAILURE [None]
  - SERUM FERRITIN INCREASED [None]
  - VIRAEMIA [None]
